FAERS Safety Report 7631428-4 (Version None)
Quarter: 2011Q3

REPORT INFORMATION
  Report Type: 
  Country: None (occurrence: None)
  Receive Date: 20110725
  Receipt Date: 20110712
  Transmission Date: 20111222
  Serious: Yes (Hospitalization)
  Sender: FDA-Public Use
  Company Number: DE-ELI_LILLY_AND_COMPANY-DE201107003618

PATIENT
  Age: 60 Year
  Sex: Male

DRUGS (6)
  1. ZYPREXA [Suspect]
     Indication: BIPOLAR DISORDER
     Dosage: 20 MG, UNKNOWN
     Route: 048
     Dates: start: 20090101
  2. CYMBALTA [Concomitant]
     Dosage: 60 MG, UNK
  3. HALOPERIDOL [Concomitant]
     Dosage: 3 MG, UNK
  4. LYRICA [Concomitant]
     Dosage: 300 MG, UNK
  5. AKINETON                           /00079501/ [Concomitant]
     Dosage: UNK
  6. LORAZEPAM [Concomitant]
     Dosage: 4 MG, UNK

REACTIONS (3)
  - DELIRIUM [None]
  - COGWHEEL RIGIDITY [None]
  - GAIT DISTURBANCE [None]
